FAERS Safety Report 23673189 (Version 1)
Quarter: 2024Q1

REPORT INFORMATION
  Report Type: Spontaneous
  Country: US (occurrence: None)
  Receive Date: 20240325
  Receipt Date: 20240325
  Transmission Date: 20240410
  Serious: Yes (Hospitalization)
  Sender: FDA-Public Use
  Company Number: None

PATIENT
  Age: 36 Year
  Sex: Female
  Weight: 108 kg

DRUGS (1)
  1. FERAHEME [Suspect]
     Active Substance: FERUMOXYTOL NON-STOICHIOMETRIC MAGNETITE
     Dosage: OTHER FREQUENCY : ONCE;?
     Route: 041

REACTIONS (4)
  - Chest discomfort [None]
  - Lip swelling [None]
  - Abdominal pain [None]
  - Pelvic pain [None]

NARRATIVE: CASE EVENT DATE: 20240325
